FAERS Safety Report 4815903-3 (Version None)
Quarter: 2005Q4

REPORT INFORMATION
  Report Type: 
  Country: None (occurrence: None)
  Receive Date: 20051031
  Receipt Date: 20051018
  Transmission Date: 20060501
  Serious: Yes (Hospitalization)
  Sender: FDA-Public Use
  Company Number: US-JNJFOC-20051004557

PATIENT
  Sex: Female

DRUGS (34)
  1. DOXORUBICIN HCL [Suspect]
     Indication: OVARIAN CANCER
     Route: 042
  2. AMOXICILLIN [Concomitant]
     Indication: PROPHYLAXIS
     Route: 048
  3. WARFARIN [Concomitant]
     Indication: ANTICOAGULANT THERAPY
     Route: 048
  4. LOMOTIL [Concomitant]
     Route: 048
  5. LOMOTIL [Concomitant]
     Route: 048
  6. GRANISETRON [Concomitant]
     Indication: NAUSEA
     Route: 048
  7. DARVOCET-N 100 [Concomitant]
     Route: 048
  8. DARVOCET-N 100 [Concomitant]
     Indication: PAIN
     Route: 048
  9. ONDANSETRON HYDROCHLORIDE [Concomitant]
     Indication: NAUSEA
     Route: 048
  10. FAMOTIDINE [Concomitant]
     Route: 048
  11. FAMOTIDINE [Concomitant]
     Route: 048
  12. PROTONIX [Concomitant]
     Route: 048
  13. DEXAMETHASONE [Concomitant]
     Indication: PREMEDICATION
     Route: 042
  14. ACETAMINOPHEN [Concomitant]
     Indication: HEADACHE
     Route: 048
  15. ACETAMINOPHEN [Concomitant]
     Indication: PAIN
     Route: 048
  16. VITAMIN E [Concomitant]
     Route: 048
  17. VITAMIN B COMPLEX CAP [Concomitant]
     Route: 048
  18. VITAMIN B COMPLEX CAP [Concomitant]
     Route: 048
  19. VITAMIN B COMPLEX CAP [Concomitant]
     Route: 048
  20. VITAMIN B COMPLEX CAP [Concomitant]
     Route: 048
  21. CALCIUM GLUCONATE [Concomitant]
     Route: 048
  22. MAGNESIUM [Concomitant]
     Route: 048
  23. ASCORBIC ACID [Concomitant]
     Route: 048
  24. MULTI-VITAMINS [Concomitant]
     Route: 048
  25. MULTI-VITAMINS [Concomitant]
     Route: 048
  26. MULTI-VITAMINS [Concomitant]
     Route: 048
  27. MULTI-VITAMINS [Concomitant]
     Route: 048
  28. MULTI-VITAMINS [Concomitant]
     Route: 048
  29. MULTI-VITAMINS [Concomitant]
     Route: 048
  30. MULTI-VITAMINS [Concomitant]
     Route: 048
  31. MULTI-VITAMINS [Concomitant]
     Route: 048
  32. LORAZEPAM [Concomitant]
     Indication: ANXIETY
     Route: 048
  33. LORAZEPAM [Concomitant]
     Indication: NAUSEA
     Route: 048
  34. ONDANSETRON HYDROCHLORIDE [Concomitant]
     Indication: PREMEDICATION
     Route: 042

REACTIONS (8)
  - FEBRILE NEUTROPENIA [None]
  - FUNGAL INFECTION [None]
  - HAEMOGLOBIN DECREASED [None]
  - OVARIAN CANCER [None]
  - PLEURAL EFFUSION [None]
  - PNEUMONIA [None]
  - SMALL INTESTINAL OBSTRUCTION [None]
  - TACHYCARDIA [None]
